FAERS Safety Report 9282869 (Version 6)
Quarter: 2015Q2

REPORT INFORMATION
  Report Type: Spontaneous
  Country: US (occurrence: US)
  Receive Date: 20130510
  Receipt Date: 20150420
  Transmission Date: 20150821
  Serious: Yes (Hospitalization, Congenital Anomaly, Other)
  Sender: FDA-Public Use
  Company Number: US-JNJFOC-20130504164

PATIENT
  Sex: Male

DRUGS (1)
  1. TOPAMAX [Suspect]
     Active Substance: TOPIRAMATE
     Indication: FOETAL EXPOSURE DURING PREGNANCY
     Route: 064

REACTIONS (9)
  - Anxiety [Unknown]
  - Weight gain poor [Unknown]
  - Supraventricular tachycardia [Recovering/Resolving]
  - Deafness [Not Recovered/Not Resolved]
  - Cleft lip and palate [Unknown]
  - Emotional disorder [Unknown]
  - Velo-cardio-facial syndrome [Unknown]
  - Developmental delay [Unknown]
  - Ventricular septal defect [Recovered/Resolved]
